FAERS Safety Report 6934929-7 (Version None)
Quarter: 2010Q3

REPORT INFORMATION
  Report Type: 
  Country: None (occurrence: None)
  Receive Date: 20100821
  Receipt Date: 20100810
  Transmission Date: 20110219
  Serious: Yes (Hospitalization)
  Sender: FDA-Public Use
  Company Number: GXKR2010US08961

PATIENT
  Age: 65 Year
  Sex: Male

DRUGS (1)
  1. GABAPENTIN [Suspect]
     Indication: HYPOAESTHESIA
     Dosage: INCREASED TO 300 MG, TID

REACTIONS (7)
  - CHEST DISCOMFORT [None]
  - DYSARTHRIA [None]
  - DYSPHAGIA [None]
  - MUSCULAR WEAKNESS [None]
  - MYASTHENIA GRAVIS [None]
  - PARAESTHESIA [None]
  - VOMITING [None]
